FAERS Safety Report 7156246-5 (Version None)
Quarter: 2010Q4

REPORT INFORMATION
  Report Type: 
  Country: None (occurrence: None)
  Receive Date: 20101214
  Receipt Date: 20101206
  Transmission Date: 20110411
  Serious: Yes (Death)
  Sender: FDA-Public Use
  Company Number: US-ELI_LILLY_AND_COMPANY-US201012002314

PATIENT

DRUGS (1)
  1. GEMCITABINE HCL [Suspect]
     Indication: NEOPLASM
     Dosage: 1000 MG/M2, OTHER
     Dates: start: 20100510

REACTIONS (1)
  - SEPSIS [None]
